FAERS Safety Report 7302098-X (Version None)
Quarter: 2011Q1

REPORT INFORMATION
  Report Type: 
  Country: None (occurrence: None)
  Receive Date: 20110218
  Receipt Date: 20110211
  Transmission Date: 20110831
  Serious: Yes (Other)
  Sender: FDA-Public Use
  Company Number: IE-MEDIMMUNE-MEDI-0012655

PATIENT

DRUGS (1)
  1. SYNAGIS [Suspect]

REACTIONS (2)
  - CARDIOMYOPATHY [None]
  - RESPIRATORY SYNCYTIAL VIRUS TEST POSITIVE [None]
